FAERS Safety Report 21632138 (Version 2)
Quarter: 2023Q1

REPORT INFORMATION
  Report Type: Report from Study
  Country: US (occurrence: US)
  Receive Date: 20221123
  Receipt Date: 20230208
  Transmission Date: 20230418
  Serious: No
  Sender: FDA-Public Use
  Company Number: US-ABBVIE-22K-163-4491954-00

PATIENT
  Sex: Female

DRUGS (6)
  1. HUMIRA [Suspect]
     Active Substance: ADALIMUMAB
     Indication: Psoriasis
     Route: 058
  2. HUMIRA [Suspect]
     Active Substance: ADALIMUMAB
     Route: 058
  3. HUMIRA [Suspect]
     Active Substance: ADALIMUMAB
     Route: 058
  4. HUMIRA [Suspect]
     Active Substance: ADALIMUMAB
     Route: 058
  5. Moderna covid-10 vaccine [Concomitant]
     Indication: COVID-19 immunisation
     Dosage: FREQUNCY- ONE IN ONCE
     Route: 030
  6. Moderna covid-10 vaccine [Concomitant]
     Indication: COVID-19 immunisation
     Dosage: FREQUNCY- ONE IN ONCE, BOOSTER DOSE
     Route: 030

REACTIONS (3)
  - Psoriasis [Unknown]
  - Arthralgia [Unknown]
  - Urinary tract infection [Recovering/Resolving]
